FAERS Safety Report 15767074 (Version 1)
Quarter: 2018Q4

REPORT INFORMATION
  Report Type: Spontaneous
  Country: JP (occurrence: JP)
  Receive Date: 20181227
  Receipt Date: 20181227
  Transmission Date: 20190205
  Serious: Yes (Other)
  Sender: FDA-Public Use
  Company Number: JP-ELI_LILLY_AND_COMPANY-JP201812010122

PATIENT
  Age: 68 Year
  Sex: Female

DRUGS (2)
  1. ERBITUX [Suspect]
     Active Substance: CETUXIMAB
     Indication: LIP AND/OR ORAL CAVITY CANCER
     Dosage: UNK, UNKNOWN
     Route: 041
  2. PACLITAXEL. [Concomitant]
     Active Substance: PACLITAXEL
     Indication: LIP AND/OR ORAL CAVITY CANCER
     Dosage: UNK, UNKNOWN
     Route: 065

REACTIONS (3)
  - Metastases to lung [Unknown]
  - Off label use [Unknown]
  - Metastases to liver [Unknown]
